FAERS Safety Report 10947981 (Version 2)
Quarter: 2015Q2

REPORT INFORMATION
  Report Type: Report from Study
  Country: CA (occurrence: CA)
  Receive Date: 20150324
  Receipt Date: 20150402
  Transmission Date: 20150821
  Serious: Yes (Hospitalization, Other)
  Sender: FDA-Public Use
  Company Number: CA-AMGEN-CANSL2015025537

PATIENT
  Age: 53 Year
  Sex: Female
  Weight: 93.7 kg

DRUGS (3)
  1. XGEVA [Suspect]
     Active Substance: DENOSUMAB
     Indication: METASTASES TO BONE
     Dosage: 1.7 ML (120 MG), UNK
     Route: 058
     Dates: start: 20140604
  2. CAPECITABINE. [Concomitant]
     Active Substance: CAPECITABINE
     Indication: BREAST CANCER
     Dosage: 160 MG, BID
     Route: 048
     Dates: start: 20140417
  3. VINORELBINE [Concomitant]
     Active Substance: VINORELBINE\VINORELBINE TARTRATE
     Indication: BREAST CANCER
     Dosage: 52 MG, QWK
     Route: 042

REACTIONS (9)
  - Weight decreased [Recovering/Resolving]
  - Lymphadenopathy mediastinal [Unknown]
  - Hypoaesthesia oral [Not Recovered/Not Resolved]
  - Pleural effusion [Recovering/Resolving]
  - Pneumonia [Recovering/Resolving]
  - Mobility decreased [Recovering/Resolving]
  - Wheelchair user [Recovered/Resolved]
  - Pain in jaw [Not Recovered/Not Resolved]
  - Pericardial effusion [Unknown]

NARRATIVE: CASE EVENT DATE: 201408
